FAERS Safety Report 4681665-6 (Version None)
Quarter: 2005Q2

REPORT INFORMATION
  Report Type: 
  Country: None (occurrence: None)
  Receive Date: 20050603
  Receipt Date: 20050525
  Transmission Date: 20051028
  Serious: Yes (Death)
  Sender: FDA-Public Use
  Company Number: GB-MERCK-0505GBR00209

PATIENT
  Age: 83 Year
  Sex: Male

DRUGS (1)
  1. DECADRON [Suspect]
     Route: 048

REACTIONS (1)
  - DIABETES MELLITUS [None]
